FAERS Safety Report 16914184 (Version 17)
Quarter: 2019Q4

REPORT INFORMATION
  Report Type: Report from Study
  Country: JP (occurrence: JP)
  Receive Date: 20191014
  Receipt Date: 20191230
  Transmission Date: 20200122
  Serious: Yes (Death, Hospitalization)
  Sender: FDA-Public Use
  Company Number: JP-EISAI MEDICAL RESEARCH-EC-2019-063594

PATIENT
  Age: 51 Year
  Sex: Female
  Weight: 52.7 kg

DRUGS (19)
  1. THYRADIN S [Concomitant]
     Active Substance: LEVOTHYROXINE SODIUM
     Dates: start: 20190926, end: 20191007
  2. PEMBROLIZUMAB. [Suspect]
     Active Substance: PEMBROLIZUMAB
     Indication: ENDOMETRIAL CANCER
     Route: 041
     Dates: start: 20190903, end: 20190903
  3. METHYCOBAL [Concomitant]
     Active Substance: METHYLCOBALAMIN
     Dates: start: 20190902, end: 20191007
  4. WYPAX [Concomitant]
     Active Substance: LORAZEPAM
     Dates: start: 20190330, end: 20191007
  5. FERROMIA [Concomitant]
     Active Substance: SODIUM FERROUS CITRATE
     Dates: start: 20190813, end: 20191007
  6. OXYCONTIN [Concomitant]
     Active Substance: OXYCODONE HYDROCHLORIDE
     Dates: start: 20190806, end: 20191007
  7. OXYCONTIN [Concomitant]
     Active Substance: OXYCODONE HYDROCHLORIDE
     Dates: start: 20190905, end: 20191007
  8. NAUZELIN [Concomitant]
     Active Substance: DOMPERIDONE
     Dates: start: 20190709, end: 20191007
  9. DEXALTIN [Concomitant]
     Active Substance: DEXAMETHASONE
     Dates: start: 20190925, end: 20191007
  10. OXYNORM [Concomitant]
     Active Substance: OXYCODONE HYDROCHLORIDE
     Dates: start: 20190806, end: 20191007
  11. ADALAT CC [Concomitant]
     Active Substance: NIFEDIPINE
     Dates: start: 20190910, end: 20191007
  12. PEMBROLIZUMAB. [Suspect]
     Active Substance: PEMBROLIZUMAB
     Route: 041
     Dates: start: 20190925, end: 20190925
  13. SODIUM PICOSULFATE [Concomitant]
     Active Substance: SODIUM PICOSULFATE
     Dates: start: 20190213, end: 20191007
  14. DIPHYLLINE [Concomitant]
     Dates: start: 20190803, end: 20191007
  15. CALONAL [Concomitant]
     Active Substance: ACETAMINOPHEN
     Dates: start: 20190902, end: 20191007
  16. LENVATINIB [Suspect]
     Active Substance: LENVATINIB
     Indication: ENDOMETRIAL CANCER
     Route: 048
     Dates: start: 20190903, end: 20191007
  17. PRIMPERAN [Concomitant]
     Active Substance: METOCLOPRAMIDE HYDROCHLORIDE
     Dates: start: 20190320, end: 20191007
  18. MAGNESIUM OXIDE. [Concomitant]
     Active Substance: MAGNESIUM OXIDE
     Dates: start: 20190321, end: 20191007
  19. ZYPREXA [Concomitant]
     Active Substance: OLANZAPINE
     Dates: start: 20190827, end: 20191007

REACTIONS (1)
  - Lower gastrointestinal perforation [Not Recovered/Not Resolved]

NARRATIVE: CASE EVENT DATE: 20191006
